FAERS Safety Report 7214802-X (Version None)
Quarter: 2011Q1

REPORT INFORMATION
  Report Type: 
  Country: None (occurrence: None)
  Receive Date: 20110107
  Receipt Date: 20100415
  Transmission Date: 20110831
  Serious: No
  Sender: FDA-Public Use
  Company Number: A0848355A

PATIENT
  Age: 45 Year
  Sex: Male

DRUGS (6)
  1. COMBIVIR [Concomitant]
     Dosage: 1TAB TWICE PER DAY
  2. KALETRA [Concomitant]
     Dosage: 3CAP TWICE PER DAY
     Route: 048
  3. AMBIEN [Concomitant]
     Dosage: 5MG AT NIGHT
     Route: 048
  4. POLYPHARMACY [Concomitant]
  5. LOVAZA [Suspect]
     Dosage: 2G TWICE PER DAY
     Route: 048
     Dates: start: 20071114, end: 20071115
  6. TRICOR [Concomitant]
     Dosage: 48MG PER DAY
     Route: 048

REACTIONS (1)
  - RASH [None]
